FAERS Safety Report 20623001 (Version 1)
Quarter: 2022Q1

REPORT INFORMATION
  Report Type: Spontaneous
  Country: US (occurrence: None)
  Receive Date: 20220322
  Receipt Date: 20220322
  Transmission Date: 20220424
  Serious: Yes (Hospitalization)
  Sender: FDA-Public Use
  Company Number: None

PATIENT
  Sex: Female

DRUGS (13)
  1. ENBREL [Suspect]
     Active Substance: ETANERCEPT
     Indication: Rheumatoid arthritis
     Dosage: INJECT 1 CARTRIDGE UNDER THE SKIN (SUBCUTANEOUS INJECTION) ONCE A WEEK
     Route: 058
     Dates: start: 20210623
  2. ARAVA TAB [Concomitant]
  3. CLONAZEPAM [Concomitant]
     Active Substance: CLONAZEPAM
  4. CYCLOBENZAPR TAB [Concomitant]
  5. FLUCONAZOLE TAB [Concomitant]
  6. FOLIC ACID TAB [Concomitant]
  7. LEVOTHYROXIN TAB [Concomitant]
  8. METHOTREXATE [Concomitant]
     Active Substance: METHOTREXATE
  9. METHYLPRED TAB [Concomitant]
  10. NYSTATIN [Concomitant]
     Active Substance: NYSTATIN
  11. SERTRALINE HYDROCHLORIDE [Concomitant]
     Active Substance: SERTRALINE HYDROCHLORIDE
  12. TRAMADOL HCL TAB [Concomitant]
  13. ZOLPIDEM TAB [Concomitant]

REACTIONS (2)
  - Intestinal perforation [None]
  - Diverticulitis [None]
